FAERS Safety Report 23111905 (Version 1)
Quarter: 2023Q4

REPORT INFORMATION
  Report Type: Spontaneous
  Country: US (occurrence: US)
  Receive Date: 20231026
  Receipt Date: 20231026
  Transmission Date: 20240110
  Serious: Yes (Other)
  Sender: FDA-Public Use
  Company Number: US-TEVA-2023-US-2937385

PATIENT
  Age: 67 Year
  Sex: Female

DRUGS (3)
  1. ALPRAZOLAM [Suspect]
     Active Substance: ALPRAZOLAM
     Indication: Product used for unknown indication
     Dosage: EXTENDED-RELEASE
     Route: 065
  2. ALPRAZOLAM [Suspect]
     Active Substance: ALPRAZOLAM
     Indication: Product used for unknown indication
     Route: 065
  3. synthetic Oxycontin. [Concomitant]
     Indication: Product used for unknown indication
     Route: 065

REACTIONS (6)
  - Autoimmune disorder [Unknown]
  - Peroneal nerve palsy [Unknown]
  - Pain [Unknown]
  - Drug tolerance [Unknown]
  - Feeling abnormal [Unknown]
  - Drug ineffective [Unknown]
